FAERS Safety Report 7441822-2 (Version None)
Quarter: 2011Q2

REPORT INFORMATION
  Report Type: 
  Country: None (occurrence: None)
  Receive Date: 20110428
  Receipt Date: 20110419
  Transmission Date: 20111010
  Serious: Yes (Hospitalization, Other)
  Sender: FDA-Public Use
  Company Number: US-ASTRAZENECA-2010SE45939

PATIENT
  Age: 679 Month
  Sex: Male
  Weight: 149.7 kg

DRUGS (5)
  1. ATENOLOL [Concomitant]
     Route: 048
  2. SEROQUEL [Suspect]
     Route: 048
     Dates: start: 20080101
  3. ALPRAZOLAM [Concomitant]
     Indication: ANXIETY
     Route: 048
  4. CARDIZEM [Concomitant]
     Indication: HYPERTENSION
     Route: 048
  5. METHADONE [Concomitant]
     Indication: PAIN
     Route: 048

REACTIONS (2)
  - SKIN ULCER [None]
  - POOR PERIPHERAL CIRCULATION [None]
